FAERS Safety Report 10239478 (Version 1)
Quarter: 2014Q2

REPORT INFORMATION
  Report Type: Spontaneous
  Country: US (occurrence: US)
  Receive Date: 20140616
  Receipt Date: 20140616
  Transmission Date: 20141212
  Serious: Yes (Other)
  Sender: FDA-Public Use
  Company Number: US-BAYER-2014-086164

PATIENT
  Age: 63 Year
  Sex: Male
  Weight: 63.49 kg

DRUGS (5)
  1. ALEVE CAPLET [Suspect]
     Indication: ANALGESIC THERAPY
     Dosage: 1 DF, PRN
     Route: 048
     Dates: end: 20140606
  2. BAYER ASPIRIN REGIMEN ADULT LOW STRENGTH [Suspect]
     Indication: ISCHAEMIC HEART DISEASE PROPHYLAXIS
     Dosage: 1-2 TABLETS, QD
     Route: 048
     Dates: start: 2000
  3. BAYER ASPIRIN REGIMEN ADULT LOW STRENGTH [Suspect]
     Indication: ISCHAEMIC HEART DISEASE PROPHYLAXIS
     Dosage: 1-2 TABLETS, QD
     Route: 048
     Dates: start: 2000
  4. VITAMIN B12 [Concomitant]
  5. FISH OIL [Concomitant]

REACTIONS (4)
  - Eye haemorrhage [Not Recovered/Not Resolved]
  - Thrombosis [Not Recovered/Not Resolved]
  - Visual field defect [None]
  - Expired product administered [None]
